FAERS Safety Report 5502193-1 (Version None)
Quarter: 2007Q4

REPORT INFORMATION
  Report Type: 
  Country: None (occurrence: None)
  Receive Date: 20071019
  Receipt Date: 20070417
  Transmission Date: 20080405
  Serious: Yes (Other)
  Sender: FDA-Public Use
  Company Number: PHEH2007US05500

PATIENT
  Age: 68 Year
  Sex: Female
  Weight: 69.8 kg

DRUGS (1)
  1. ZOMETA [Suspect]
     Indication: OSTEOPOROSIS
     Dosage: 4 MG, INTRAVENOUS
     Route: 042
     Dates: start: 20070326

REACTIONS (7)
  - ARTHRALGIA [None]
  - CHILLS [None]
  - ERYTHEMA [None]
  - JOINT SWELLING [None]
  - MOVEMENT DISORDER [None]
  - PYREXIA [None]
  - TREMOR [None]
